FAERS Safety Report 9569107 (Version 1)
Quarter: 2013Q3

REPORT INFORMATION
  Report Type: Spontaneous
  Country: US (occurrence: US)
  Receive Date: 20130930
  Receipt Date: 20130930
  Transmission Date: 20140515
  Serious: No
  Sender: FDA-Public Use
  Company Number: US-AMGEN-USASP2013059724

PATIENT
  Age: 45 Year
  Sex: Female
  Weight: 97.51 kg

DRUGS (2)
  1. ENBREL [Suspect]
     Indication: PRODUCT USED FOR UNKNOWN INDICATION
     Dosage: 50 MG, QWK
     Route: 058
  2. LEXAPRO [Concomitant]
     Dosage: 20 MG, UNK
     Route: 048

REACTIONS (2)
  - Drug effect decreased [Unknown]
  - Psoriasis [Unknown]
